FAERS Safety Report 7329723-1 (Version None)
Quarter: 2011Q1

REPORT INFORMATION
  Report Type: 
  Country: None (occurrence: None)
  Receive Date: 20110223
  Receipt Date: 20110208
  Transmission Date: 20110831
  Serious: Yes (Hospitalization)
  Sender: FDA-Public Use
  Company Number: 1000018879

PATIENT
  Age: 44 Year
  Sex: Female

DRUGS (2)
  1. CARDENSIEL (BISOPROLOL FUMARATE) (BISOPROLOL FUMARATE) [Concomitant]
  2. ESCITALOPRAM [Suspect]
     Dosage: ORAL
     Route: 048
     Dates: start: 20100901, end: 20110110

REACTIONS (8)
  - ALEXIA [None]
  - CEREBRAL HAEMATOMA [None]
  - APHASIA [None]
  - MENINGORRHAGIA [None]
  - CEREBRAL VASOCONSTRICTION [None]
  - PUPILS UNEQUAL [None]
  - BLOOD PRESSURE SYSTOLIC INCREASED [None]
  - VASCULITIS CEREBRAL [None]
